FAERS Safety Report 6157819-9 (Version None)
Quarter: 2009Q2

REPORT INFORMATION
  Report Type: 
  Country: None (occurrence: None)
  Receive Date: 20090414
  Receipt Date: 20090225
  Transmission Date: 20091009
  Serious: Yes (Other)
  Sender: FDA-Public Use
  Company Number: ADR0632009

PATIENT
  Age: 77 Year
  Sex: Female

DRUGS (24)
  1. CO LEVETIRACETAM TABLETS [Suspect]
     Indication: EPILEPSY
     Dosage: 375 MG TWICE A DAY ORAL
     Route: 048
  2. ASPIRIN [Concomitant]
  3. CARBAMAZEPINE [Concomitant]
  4. CEFUROXIME FOR INJECTIONS [Concomitant]
  5. CEPHALEXIN [Concomitant]
  6. CIPROFLOXACIN [Concomitant]
  7. CYANOCOBALAMIN [Concomitant]
  8. DIMENHYDRINATE [Concomitant]
  9. DOCUSATE NOS [Concomitant]
  10. FENTANYL [Concomitant]
  11. FOLIC ACID [Concomitant]
  12. HYDRALAZINE HCL [Concomitant]
  13. HYDROCHLOROTHIAZIDE [Concomitant]
  14. ISOSORBIDE DINITRATE [Concomitant]
  15. LIPITOR [Concomitant]
  16. NADOLOL [Concomitant]
  17. NITROGLYCERIN [Concomitant]
  18. NORVASC [Concomitant]
  19. PYRIDOXINE [Concomitant]
  20. RABEPRAZOLE SODIUM [Concomitant]
  21. SENNOSIDES [Concomitant]
  22. TYLENOL W/ CODEINE NO. 3 [Concomitant]
  23. WARFARIN SODIUM [Concomitant]
  24. ZOPICLONE [Concomitant]

REACTIONS (1)
  - HYPONATRAEMIA [None]
